FAERS Safety Report 9631517 (Version 3)
Quarter: 2014Q1

REPORT INFORMATION
  Report Type: Spontaneous
  Country: HK (occurrence: None)
  Receive Date: 20131015
  Receipt Date: 20140127
  Transmission Date: 20141002
  Serious: Yes (Hospitalization)
  Sender: FDA-Public Use
  Company Number: 2013HK002615

PATIENT
  Age: 49 Year
  Sex: Female
  Weight: 55 kg

DRUGS (11)
  1. PONATINIB [Suspect]
     Indication: CHRONIC MYELOID LEUKAEMIA
     Route: 048
     Dates: start: 20130918, end: 20131001
  2. CETIRIZINE HCL (CERTIZITINE HYDROHLORIDE) [Concomitant]
  3. CHLORPHENIRAMINE MALEATE (CHLORPHENIRAMINE MALEATE) [Concomitant]
  4. CIPROFLOXACIN HCL (CIPROFLOXACIN HYDROCHLORIDE) [Concomitant]
  5. METOCLOPRAMDE HCL (METOCLOPRAMIDE HYDROCHLORIDE) [Concomitant]
  6. PARACETAMOL (PARACETAMOL) [Concomitant]
  7. CALCIUM CARBONATE (CALCIUM CARBONATE) (CALCIUM CARBONATE) [Concomitant]
  8. GELOFUSINE (POLYGELINE, POTASSIUM CHLORIDE, SODIUM CHLORIDE) [Concomitant]
  9. PIRITON DUOLETS (CHLOPHENAMINE MALEATE) [Concomitant]
  10. LASIX (FUROSEMIDE) [Concomitant]
  11. ZINNAT (CEFUROXIME SODIUM) [Concomitant]

REACTIONS (18)
  - Sepsis [None]
  - Hyponatraemia [None]
  - Blood creatinine increased [None]
  - Blood bilirubin increased [None]
  - Hypocalcaemia [None]
  - Anaemia [None]
  - Platelet count decreased [None]
  - Pancytopenia [None]
  - Polyarthritis [None]
  - Blood pressure decreased [None]
  - Abdominal pain upper [None]
  - Vomiting [None]
  - Rash [None]
  - Influenza like illness [None]
  - Oedema peripheral [None]
  - Pleural effusion [None]
  - Oedema peripheral [None]
  - Rash [None]
